FAERS Safety Report 4424943-8 (Version None)
Quarter: 2004Q3

REPORT INFORMATION
  Report Type: 
  Country: None (occurrence: None)
  Receive Date: 20040719
  Receipt Date: 20040412
  Transmission Date: 20050211
  Serious: Yes (Hospitalization)
  Sender: FDA-Public Use
  Company Number: 195916

PATIENT
  Age: 38 Year
  Sex: Female
  Weight: 58.0604 kg

DRUGS (4)
  1. AVONEX [Suspect]
     Indication: MULTIPLE SCLEROSIS
     Dosage: 30 MCG QW IM
     Route: 030
  2. DITROPAN [Concomitant]
  3. MECLIZINE [Concomitant]
  4. ANTIDEPRESSANT [Concomitant]

REACTIONS (2)
  - GASTROENTERITIS SALMONELLA [None]
  - MULTIPLE SCLEROSIS RELAPSE [None]
